FAERS Safety Report 18154440 (Version 3)
Quarter: 2025Q3

REPORT INFORMATION
  Report Type: Report from Study
  Country: GB (occurrence: GB)
  Receive Date: 20200817
  Receipt Date: 20250821
  Transmission Date: 20251021
  Serious: Yes (Other)
  Sender: AUROBINDO
  Company Number: GB-VIIV HEALTHCARE LIMITED-GB2020GSK151498

PATIENT
  Age: 6 Year
  Sex: Female

DRUGS (8)
  1. ABACAVIR [Suspect]
     Active Substance: ABACAVIR
     Indication: Perinatal HIV infection
     Route: 065
  2. ZIDOVUDINE [Suspect]
     Active Substance: ZIDOVUDINE
     Indication: HIV infection
     Route: 065
  3. LAMIVUDINE [Suspect]
     Active Substance: LAMIVUDINE
     Indication: HIV infection
     Route: 065
  4. ZALCITABINE [Suspect]
     Active Substance: ZALCITABINE
     Indication: HIV infection
     Route: 065
  5. RITONAVIR [Suspect]
     Active Substance: RITONAVIR
     Indication: Perinatal HIV infection
     Route: 065
  6. LOPINAVIR [Suspect]
     Active Substance: LOPINAVIR
     Indication: Perinatal HIV infection
     Route: 065
  7. TRUVADA [Suspect]
     Active Substance: EMTRICITABINE\TENOFOVIR DISOPROXIL FUMARATE
     Indication: Perinatal HIV infection
     Route: 065
  8. DIDANOSINE [Suspect]
     Active Substance: DIDANOSINE
     Indication: Perinatal HIV infection
     Route: 065

REACTIONS (5)
  - Blood HIV RNA increased [Recovered/Resolved]
  - CD4 lymphocytes decreased [Recovered/Resolved]
  - Virologic failure [Unknown]
  - Treatment noncompliance [Unknown]
  - Incorrect route of product administration [Unknown]
